FAERS Safety Report 9219771 (Version 1)
Quarter: 2013Q2

REPORT INFORMATION
  Report Type: Spontaneous
  Country: TR (occurrence: TR)
  Receive Date: 20130409
  Receipt Date: 20130409
  Transmission Date: 20140414
  Serious: Yes (Death, Other)
  Sender: FDA-Public Use
  Company Number: TR-ROCHE-1208126

PATIENT
  Age: 57 Year
  Sex: Female

DRUGS (3)
  1. PEGASYS [Suspect]
     Indication: INFLAMMATION
     Route: 058
  2. RIBAVIRIN [Concomitant]
     Indication: INFLAMMATION
     Route: 048
  3. TELAPREVIR [Concomitant]
     Indication: INFLAMMATION
     Route: 058

REACTIONS (5)
  - Thrombocytopenia [Fatal]
  - Prothrombin time prolonged [Fatal]
  - Anaemia [Fatal]
  - Acute hepatic failure [Fatal]
  - Rash maculo-papular [Recovered/Resolved]
